FAERS Safety Report 8496795-0 (Version None)
Quarter: 2012Q3

REPORT INFORMATION
  Report Type: 
  Country: None (occurrence: None)
  Receive Date: 20120709
  Receipt Date: 20120705
  Transmission Date: 20120928
  Serious: Yes (Hospitalization)
  Sender: FDA-Public Use
  Company Number: PHHY2012DE021412

PATIENT
  Sex: Female
  Weight: 70 kg

DRUGS (1)
  1. EXTAVIA [Suspect]
     Dosage: 250 UG, QOD
     Route: 058
     Dates: start: 20110201, end: 20120301

REACTIONS (4)
  - DYSPNOEA [None]
  - DIZZINESS [None]
  - SYNCOPE [None]
  - HYPERSENSITIVITY [None]
